FAERS Safety Report 25275206 (Version 1)
Quarter: 2025Q2

REPORT INFORMATION
  Report Type: Other
  Country: US (occurrence: US)
  Receive Date: 20250506
  Receipt Date: 20250506
  Transmission Date: 20250716
  Serious: Yes (Hospitalization, Other)
  Sender: GUARDIAN DRUG COMPANY
  Company Number: US-Guardian Drug Company-2176254

PATIENT
  Age: 8 Decade
  Sex: Female

DRUGS (9)
  1. CHILDRENS IBUPROFEN [Suspect]
     Active Substance: IBUPROFEN
     Indication: Spinal stenosis
  2. CHILDRENS IBUPROFEN [Suspect]
     Active Substance: IBUPROFEN
     Indication: Neuropathy peripheral
  3. AMOXICILLIN [Suspect]
     Active Substance: AMOXICILLIN
  4. CLINDAMYCIN [Concomitant]
     Active Substance: CLINDAMYCIN
  5. ACETAMINOPHEN [Concomitant]
     Active Substance: ACETAMINOPHEN
  6. BACLOFEN [Concomitant]
     Active Substance: BACLOFEN
  7. DIPHENHYDRAMINE [Concomitant]
     Active Substance: DIPHENHYDRAMINE
  8. PROCHLORPERAZINE [Concomitant]
     Active Substance: PROCHLORPERAZINE
  9. KETOROLAC [Concomitant]
     Active Substance: KETOROLAC TROMETHAMINE

REACTIONS (2)
  - Meningitis aseptic [Recovering/Resolving]
  - Product use in unapproved indication [Unknown]
